FAERS Safety Report 18034289 (Version 1)
Quarter: 2020Q3

REPORT INFORMATION
  Report Type: Spontaneous
  Country: US (occurrence: US)
  Receive Date: 20200716
  Receipt Date: 20200716
  Transmission Date: 20201103
  Serious: Yes (Other)
  Sender: FDA-Public Use
  Company Number: US-PFIZER INC-2020264579

PATIENT
  Age: 62 Year
  Sex: Male

DRUGS (2)
  1. MORPHINE SULFATE. [Suspect]
     Active Substance: MORPHINE SULFATE
     Indication: ANALGESIC THERAPY
     Dosage: 62 MG IN 3 3/4 POSTOPERATIVE DAYS
     Route: 030
  2. MEPERIDINE HCL [Suspect]
     Active Substance: MEPERIDINE HYDROCHLORIDE
     Dosage: 35 MG

REACTIONS (3)
  - Cheyne-Stokes respiration [Recovered/Resolved]
  - Therapeutic product effect prolonged [Unknown]
  - Hypercapnia [Recovered/Resolved]
